FAERS Safety Report 5976854-4 (Version None)
Quarter: 2008Q4

REPORT INFORMATION
  Report Type: 
  Country: None (occurrence: None)
  Receive Date: 20081203
  Receipt Date: 20080214
  Transmission Date: 20090506
  Serious: No
  Sender: FDA-Public Use
  Company Number: US-AMGEN-KDL262166

PATIENT
  Sex: Female

DRUGS (3)
  1. ENBREL [Suspect]
     Indication: RHEUMATOID ARTHRITIS
     Route: 058
     Dates: start: 20070405
  2. METHOTREXATE [Concomitant]
     Route: 048
     Dates: start: 19970501
  3. PLAQUENIL [Concomitant]
     Route: 048
     Dates: start: 19970101

REACTIONS (3)
  - ARTHRALGIA [None]
  - FALL [None]
  - JOINT SWELLING [None]
